FAERS Safety Report 5321655-3 (Version None)
Quarter: 2007Q1

REPORT INFORMATION
  Report Type: 
  Country: None (occurrence: None)
  Receive Date: 20070220
  Receipt Date: 20070102
  Transmission Date: 20070707
  Serious: No
  Sender: FDA-Public Use
  Company Number: TPA2006A02194

PATIENT
  Age: 45 Year
  Sex: Female
  Weight: 77.1115 kg

DRUGS (22)
  1. ROZEREM [Suspect]
     Indication: INSOMNIA
     Dosage: 8 MG, QHS, PER ORAL
     Route: 048
     Dates: start: 20060906
  2. HUMULIN R [Concomitant]
  3. SYNTHROID [Concomitant]
  4. COUMADIN [Concomitant]
  5. XANAX [Concomitant]
  6. METHADONE (METHADONE) (TABLETS) [Concomitant]
  7. CARBAMAZEPINE [Concomitant]
  8. FLEXERIL [Concomitant]
  9. ZOLOFT [Concomitant]
  10. MICRO-K (POTASSIUM CHLORIDE) [Concomitant]
  11. LASIX [Concomitant]
  12. CAPOTPRIL (CAPTOPRIL) [Concomitant]
  13. VYTORIN [Concomitant]
  14. CLONIDINE [Concomitant]
  15. NEXIUM [Concomitant]
  16. CARAFATE [Concomitant]
  17. TIGAN [Concomitant]
  18. NITROGLYCERIN TABLETS (GLYCERYL TRINITRATE) [Concomitant]
  19. ADVAIR INHALER (FLUTICASONE PROPIONATE, SALMETEROL XINAFOATE) (INHALAN [Concomitant]
  20. ALBUTEROL INHALER (SALBUTAMOL) [Concomitant]
  21. MULTIVITAMIN [Concomitant]
  22. VITAMIN E [Concomitant]

REACTIONS (5)
  - ANXIETY [None]
  - DELIRIUM [None]
  - DRUG INEFFECTIVE [None]
  - INITIAL INSOMNIA [None]
  - MIDDLE INSOMNIA [None]
